FAERS Safety Report 18243258 (Version 5)
Quarter: 2021Q1

REPORT INFORMATION
  Report Type: Spontaneous
  Country: US (occurrence: US)
  Receive Date: 20200908
  Receipt Date: 20210219
  Transmission Date: 20210419
  Serious: Yes (Hospitalization, Other)
  Sender: FDA-Public Use
  Company Number: US-AKCEA THERAPEUTICS-2020IS001365

PATIENT
  Age: 68 Year
  Sex: Male

DRUGS (2)
  1. TEGSEDI [Suspect]
     Active Substance: INOTERSEN SODIUM
     Indication: AMYLOIDOSIS SENILE
     Route: 058
     Dates: start: 20200423
  2. ISSD (INTEGRATED SYRINGE SAFETY DEVICE) [Suspect]
     Active Substance: DEVICE

REACTIONS (8)
  - Feeling cold [Unknown]
  - Platelet count decreased [Unknown]
  - Urine protein/creatinine ratio increased [Unknown]
  - SARS-CoV-2 test positive [Unknown]
  - Glucose urine present [Unknown]
  - Blood creatinine increased [Unknown]
  - Diverticulitis [Unknown]
  - Protein urine present [Unknown]
